FAERS Safety Report 20143260 (Version 7)
Quarter: 2022Q1

REPORT INFORMATION
  Report Type: Spontaneous
  Country: US (occurrence: US)
  Receive Date: 20211203
  Receipt Date: 20220203
  Transmission Date: 20220423
  Serious: Yes (Death, Hospitalization)
  Sender: FDA-Public Use
  Company Number: US-CELGENE-USA-20211200118

PATIENT
  Sex: Male

DRUGS (2)
  1. REVLIMID [Suspect]
     Active Substance: LENALIDOMIDE
     Indication: Plasma cell myeloma
     Dosage: 25 MILLIGRAM
     Route: 048
     Dates: start: 20210929, end: 202110
  2. NAFCILLIN [Concomitant]
     Active Substance: NAFCILLIN SODIUM
     Indication: Product used for unknown indication
     Route: 065

REACTIONS (1)
  - Endocarditis [Fatal]
